FAERS Safety Report 8582075-1 (Version None)
Quarter: 2012Q3

REPORT INFORMATION
  Report Type: 
  Country: None (occurrence: None)
  Receive Date: 20120809
  Receipt Date: 20120806
  Transmission Date: 20120928
  Serious: Yes (Other)
  Sender: FDA-Public Use
  Company Number: US-PFIZER INC-2012191312

PATIENT
  Sex: Female

DRUGS (3)
  1. GEODON [Suspect]
     Dosage: 40 MG, UNK
  2. GEODON [Suspect]
     Dosage: 60 MG, UNK
  3. LITHIUM CARBONATE [Suspect]
     Dosage: 900 MG, UNK (900 MG, 3 PILLS)

REACTIONS (4)
  - ASTHENIA [None]
  - SOMNOLENCE [None]
  - HYPERSOMNIA [None]
  - MALAISE [None]
